FAERS Safety Report 9133488 (Version 1)
Quarter: 2013Q1

REPORT INFORMATION
  Report Type: Spontaneous
  Country: US (occurrence: US)
  Receive Date: 20130124
  Receipt Date: 20130124
  Transmission Date: 20140127
  Serious: Yes (Life-Threatening)
  Sender: FDA-Public Use
  Company Number: US-BRACCO-008759

PATIENT
  Age: 51 Year
  Sex: Female
  Weight: 64 kg

DRUGS (2)
  1. MULTIHANCE [Suspect]
     Indication: ANGIOGRAM
     Route: 042
     Dates: start: 20121030, end: 20121030
  2. MULTIHANCE [Suspect]
     Indication: CAROTID ARTERY STENOSIS
     Route: 042
     Dates: start: 20121030, end: 20121030

REACTIONS (1)
  - Anaphylactic reaction [Recovered/Resolved]
